FAERS Safety Report 20304716 (Version 1)
Quarter: 2022Q1

REPORT INFORMATION
  Report Type: Spontaneous
  Country: US (occurrence: US)
  Receive Date: 20220106
  Receipt Date: 20220106
  Transmission Date: 20220424
  Serious: Yes (Other)
  Sender: FDA-Public Use
  Company Number: US-PFIZER INC-202101870377

PATIENT
  Age: 51 Year
  Sex: Female

DRUGS (2)
  1. PROPOFOL [Suspect]
     Active Substance: PROPOFOL
     Indication: Anaesthesia
     Dosage: 329.88 MG
     Route: 037
  2. REMIFENTANIL [Suspect]
     Active Substance: REMIFENTANIL
     Indication: Anaesthesia
     Dosage: 192.13 UG
     Route: 037

REACTIONS (2)
  - Incorrect route of product administration [Recovered/Resolved]
  - Cerebrospinal fluid leakage [Recovered/Resolved]
